FAERS Safety Report 12876686 (Version 1)
Quarter: 2016Q4

REPORT INFORMATION
  Report Type: Spontaneous
  Country: US (occurrence: US)
  Receive Date: 20161024
  Receipt Date: 20161024
  Transmission Date: 20170207
  Serious: Yes (Hospitalization, Disabling)
  Sender: FDA-Public Use
  Company Number: None

PATIENT
  Age: 74 Year
  Sex: Male
  Weight: 92.99 kg

DRUGS (9)
  1. CLINDAMYCIN 300MG CAP RANBAXY [Suspect]
     Active Substance: CLINDAMYCIN
     Indication: NAIL DISORDER
     Dosage: 1 CAPSULE BY MOUTH 4 TIMES DAILY
     Route: 048
     Dates: start: 20150205, end: 20150215
  2. FAMOTIDINE. [Concomitant]
     Active Substance: FAMOTIDINE
  3. METOPROLOL. [Concomitant]
     Active Substance: METOPROLOL
  4. FOLIC ACID. [Concomitant]
     Active Substance: FOLIC ACID
  5. ATORVASTATIN CALCIUM. [Concomitant]
     Active Substance: ATORVASTATIN CALCIUM
  6. FUROSEMIDE. [Concomitant]
     Active Substance: FUROSEMIDE
  7. DRISDOL [Concomitant]
     Active Substance: ERGOCALCIFEROL
  8. AMLODIPINE [Concomitant]
     Active Substance: AMLODIPINE BESYLATE
  9. ROCALTROL [Concomitant]
     Active Substance: CALCITRIOL

REACTIONS (5)
  - Acute kidney injury [None]
  - Rash [None]
  - Diarrhoea [None]
  - Blood urine [None]
  - Oral mucosal blistering [None]

NARRATIVE: CASE EVENT DATE: 20150205
